FAERS Safety Report 22344027 (Version 1)
Quarter: 2023Q2

REPORT INFORMATION
  Report Type: Spontaneous
  Country: BR (occurrence: BR)
  Receive Date: 20230519
  Receipt Date: 20230519
  Transmission Date: 20230722
  Serious: Yes (Other)
  Sender: FDA-Public Use
  Company Number: BR-SA-2023SA152604

PATIENT
  Age: 70 Year
  Sex: Male

DRUGS (1)
  1. ENOXAPARIN SODIUM [Suspect]
     Active Substance: ENOXAPARIN SODIUM
     Indication: Anticoagulant therapy
     Dosage: FULL-DOSE ENOXAPARIN

REACTIONS (3)
  - Depressed level of consciousness [Unknown]
  - Intraventricular haemorrhage [Unknown]
  - Cerebral haematoma [Unknown]
